FAERS Safety Report 24048798 (Version 2)
Quarter: 2024Q3

REPORT INFORMATION
  Report Type: Report from Study
  Country: JP (occurrence: JP)
  Receive Date: 20240704
  Receipt Date: 20240724
  Transmission Date: 20241017
  Serious: Yes (Hospitalization)
  Sender: MERZ
  Company Number: JP-teijin-202402237_XEO_P_1

PATIENT
  Age: 60 Year
  Sex: Female
  Weight: 56 kg

DRUGS (6)
  1. XEOMIN [Suspect]
     Active Substance: INCOBOTULINUMTOXINA
     Indication: Muscle spasticity
     Dosage: 500 025
     Route: 030
     Dates: start: 20230424, end: 20230424
  2. XEOMIN [Suspect]
     Active Substance: INCOBOTULINUMTOXINA
     Indication: Muscle spasticity
     Dosage: 500 025
     Route: 030
     Dates: start: 20231030, end: 20231030
  3. XEOMIN [Suspect]
     Active Substance: INCOBOTULINUMTOXINA
     Dosage: 500 025
     Route: 030
     Dates: start: 20231030, end: 20231030
  4. XEOMIN [Suspect]
     Active Substance: INCOBOTULINUMTOXINA
     Route: 030
     Dates: start: 20240701, end: 20240701
  5. EPERISONE HYDROCHLORIDE [Concomitant]
     Active Substance: EPERISONE HYDROCHLORIDE
     Indication: Muscle spasticity
     Dosage: 100 MG
     Route: 048
  6. EPERISONE HYDROCHLORIDE [Concomitant]
     Active Substance: EPERISONE HYDROCHLORIDE
     Indication: Muscle spasticity

REACTIONS (3)
  - Cholecystitis acute [Recovering/Resolving]
  - Cholelithiasis [Recovering/Resolving]
  - Off label use [Unknown]

NARRATIVE: CASE EVENT DATE: 20230424
